FAERS Safety Report 7810099-8 (Version None)
Quarter: 2011Q4

REPORT INFORMATION
  Report Type: 
  Country: None (occurrence: None)
  Receive Date: 20111012
  Receipt Date: 20111005
  Transmission Date: 20120403
  Serious: Yes (Other)
  Sender: FDA-Public Use
  Company Number: AU-B.I. PHARMACEUTICALS,INC./RIDGEFIELD-2011-AU-01686AU

PATIENT
  Age: 31 Year
  Sex: Female

DRUGS (1)
  1. PRADAXA [Suspect]

REACTIONS (5)
  - CEREBRAL ARTERY EMBOLISM [None]
  - ATRIAL FIBRILLATION [None]
  - VOMITING [None]
  - NAUSEA [None]
  - CEREBROVASCULAR ACCIDENT [None]
